FAERS Safety Report 8161601-0 (Version None)
Quarter: 2012Q1

REPORT INFORMATION
  Report Type: 
  Country: None (occurrence: None)
  Receive Date: 20120224
  Receipt Date: 20120217
  Transmission Date: 20120608
  Serious: Yes (Other)
  Sender: FDA-Public Use
  Company Number: US-BAYER-2011-090603

PATIENT
  Sex: Female
  Weight: 86.168 kg

DRUGS (2)
  1. DROSPIRENONE AND ETHINYL ESTRADIOL [Suspect]
     Dosage: UNK
     Dates: start: 20050201, end: 20090701
  2. YASMIN [Suspect]
     Dosage: UNK
     Dates: start: 20050201, end: 20090701

REACTIONS (11)
  - NAUSEA [None]
  - GALLBLADDER DISORDER [None]
  - INJURY [None]
  - ANXIETY [None]
  - PROCEDURAL PAIN [None]
  - VOMITING [None]
  - LARYNGEAL INJURY [None]
  - EMOTIONAL DISTRESS [None]
  - ABDOMINAL PAIN [None]
  - POLYP [None]
  - CHOLECYSTITIS CHRONIC [None]
